FAERS Safety Report 10669851 (Version 1)
Quarter: 2014Q4

REPORT INFORMATION
  Report Type: Spontaneous
  Country: US (occurrence: US)
  Receive Date: 20141222
  Receipt Date: 20141222
  Transmission Date: 20150529
  Serious: No
  Sender: FDA-Public Use
  Company Number: US-GILEAD-2014-0128661

PATIENT
  Age: 46 Year
  Sex: Male

DRUGS (2)
  1. OXYGEN. [Concomitant]
     Active Substance: OXYGEN
  2. LETAIRIS [Suspect]
     Active Substance: AMBRISENTAN
     Indication: PRODUCT USED FOR UNKNOWN INDICATION
     Dosage: 10 MG, QD
     Route: 065
     Dates: start: 20140817

REACTIONS (5)
  - Weight increased [Unknown]
  - Dyspnoea exertional [Unknown]
  - Fluid retention [Unknown]
  - Depression [Unknown]
  - Syncope [Unknown]

NARRATIVE: CASE EVENT DATE: 201412
